FAERS Safety Report 9230705 (Version 1)
Quarter: 2013Q1

REPORT INFORMATION
  Report Type: Spontaneous
  Country: US (occurrence: None)
  Receive Date: 20121031
  Receipt Date: 20121031
  Transmission Date: 20140127
  Serious: No
  Sender: FDA-Public Use
  Company Number: PHEH2012US013883

PATIENT
  Sex: Male

DRUGS (9)
  1. GILENYA (FTY) CAPSULE, 0.5MG [Suspect]
     Route: 048
  2. GABAPENTIN (GABAPENTIN) [Concomitant]
  3. FINASTERIDE (FINASTERIDE) [Concomitant]
  4. METOPROLOL (METOPROLOL) [Concomitant]
  5. OMEPRAZOLE (OMEPRAZOLE) [Concomitant]
  6. SUMATRIPTAN (SUMATRIPTAN) [Concomitant]
  7. LOVASTATIN (LOVASTATIN) [Concomitant]
  8. PROAIR HFA (SALBUTAMOL SULFATE) [Concomitant]
  9. CYCLOBENZAPRINE (CYCLOBENZAPRINE) [Concomitant]

REACTIONS (2)
  - Balance disorder [None]
  - Migraine [None]
